FAERS Safety Report 15372592 (Version 1)
Quarter: 2018Q3

REPORT INFORMATION
  Report Type: Spontaneous
  Country: BR (occurrence: BR)
  Receive Date: 20180911
  Receipt Date: 20180911
  Transmission Date: 20181010
  Serious: Yes (Hospitalization, Other)
  Sender: FDA-Public Use
  Company Number: BR-BAXTER-2018BAX023216

PATIENT
  Age: 68 Year
  Sex: Male

DRUGS (1)
  1. FLOSEAL [Suspect]
     Active Substance: THROMBIN
     Indication: HAEMOSTASIS
     Route: 061
     Dates: start: 20180824

REACTIONS (3)
  - Anaemia [Unknown]
  - Gastric ulcer [Unknown]
  - Drug ineffective [Recovered/Resolved]

NARRATIVE: CASE EVENT DATE: 201808
